FAERS Safety Report 9781797 (Version 2)
Quarter: 2014Q1

REPORT INFORMATION
  Report Type: Spontaneous
  Country: IT (occurrence: IT)
  Receive Date: 20131225
  Receipt Date: 20140214
  Transmission Date: 20141002
  Serious: Yes (Hospitalization)
  Sender: FDA-Public Use
  Company Number: IT-BIOGENIDEC-2013BI122017

PATIENT
  Age: 32 Year
  Sex: Female

DRUGS (4)
  1. TYSABRI [Suspect]
     Indication: RELAPSING-REMITTING MULTIPLE SCLEROSIS
     Route: 042
     Dates: start: 201007, end: 20121119
  2. TYSABRI [Suspect]
     Indication: RELAPSING-REMITTING MULTIPLE SCLEROSIS
     Route: 042
  3. AMITRIPTYLINE [Concomitant]
     Indication: MIGRAINE WITHOUT AURA
     Dates: start: 201110
  4. AMITRIPTYLINE [Concomitant]
     Indication: DEPRESSION
     Dates: start: 201110

REACTIONS (5)
  - Suicide attempt [Recovered/Resolved]
  - Depression [Not Recovered/Not Resolved]
  - Psychotic disorder [Recovered/Resolved]
  - Drug interaction [Unknown]
  - Multiple sclerosis [Unknown]
